FAERS Safety Report 7706257-3 (Version None)
Quarter: 2011Q3

REPORT INFORMATION
  Report Type: 
  Country: None (occurrence: None)
  Receive Date: 20110824
  Receipt Date: 20110816
  Transmission Date: 20111222
  Serious: Yes (Hospitalization)
  Sender: FDA-Public Use
  Company Number: US-ROCHE-797489

PATIENT
  Sex: Female

DRUGS (1)
  1. ACTEMRA [Suspect]
     Route: 042
     Dates: start: 20110618, end: 20110806

REACTIONS (5)
  - DIZZINESS [None]
  - FALL [None]
  - HYPOTENSION [None]
  - CEREBRAL HAEMORRHAGE [None]
  - URINARY TRACT INFECTION [None]
